FAERS Safety Report 13632485 (Version 1)
Quarter: 2017Q2

REPORT INFORMATION
  Report Type: Spontaneous
  Country: US (occurrence: US)
  Receive Date: 20170531
  Receipt Date: 20170531
  Transmission Date: 20170830
  Serious: No
  Sender: FDA-Public Use
  Company Number: US-ASTELLAS-1461617

PATIENT
  Age: 69 Year
  Sex: Female

DRUGS (7)
  1. SENNA/DOCUSATE SODIUM [Concomitant]
     Active Substance: DOCUSATE SODIUM\SENNOSIDES
  2. PENICILLIN V POTASSIUM. [Concomitant]
     Active Substance: PENICILLIN V POTASSIUM
  3. DURAGESIC [Concomitant]
     Active Substance: FENTANYL
  4. LORAZEPAM. [Concomitant]
     Active Substance: LORAZEPAM
  5. VICODIN [Concomitant]
     Active Substance: ACETAMINOPHEN\HYDROCODONE BITARTRATE
  6. TARCEVA [Suspect]
     Active Substance: ERLOTINIB HYDROCHLORIDE
     Indication: LUNG NEOPLASM MALIGNANT
     Route: 048
     Dates: start: 20140902
  7. FENTANYL. [Concomitant]
     Active Substance: FENTANYL

REACTIONS (2)
  - Osteomyelitis [Unknown]
  - Fatigue [Unknown]

NARRATIVE: CASE EVENT DATE: 20150401
